FAERS Safety Report 10880695 (Version 1)
Quarter: 2015Q1

REPORT INFORMATION
  Report Type: Spontaneous
  Country: IN (occurrence: None)
  Receive Date: 20150226
  Receipt Date: 20150226
  Transmission Date: 20150721
  Serious: Yes (Death, Other)
  Sender: FDA-Public Use
  Company Number: 2015HINLIT0172

PATIENT
  Age: 14 Year
  Sex: Male

DRUGS (9)
  1. CAPREOMYCIN [Suspect]
     Active Substance: CAPREOMYCIN
     Indication: TUBERCULOSIS
     Dates: start: 20070727
  2. CALAVULANIC ACID (CALAVULANIC ACID) [Suspect]
     Active Substance: CLAVULANIC ACID
     Indication: TUBERCULOSIS
     Dates: start: 20070727
  3. AMOXICILLIN (AMOXICILLIN) [Suspect]
     Active Substance: AMOXICILLIN
     Indication: TUBERCULOSIS
     Dates: start: 20070727
  4. EFAVIRENZ (EFAVIRENZ) UNKNOWN [Suspect]
     Active Substance: EFAVIRENZ
     Indication: ANTIRETROVIRAL THERAPY
  5. LEVOFLOXACIN (LEVOFLOXACIN) [Suspect]
     Active Substance: LEVOFLOXACIN
     Indication: TUBERCULOSIS
     Dates: start: 20070727
  6. CYCLOSERINE. [Suspect]
     Active Substance: CYCLOSERINE
     Indication: TUBERCULOSIS
  7. ETHIONAMIDE (ETHIONAMIDE) [Suspect]
     Active Substance: ETHIONAMIDE
     Indication: TUBERCULOSIS
     Dates: start: 20070727
  8. LAMIVUDINE (LAMIVUDINE) UNKNOWN [Suspect]
     Active Substance: LAMIVUDINE
     Indication: ANTIRETROVIRAL THERAPY
  9. STAVUDINE (STAVUDINE) UNKNOWN [Suspect]
     Active Substance: STAVUDINE
     Indication: ANTIRETROVIRAL THERAPY

REACTIONS (4)
  - Gastrointestinal disorder [None]
  - Seizure [None]
  - Tuberculoma of central nervous system [None]
  - Neuropathy peripheral [None]
